FAERS Safety Report 10191531 (Version 2)
Quarter: 2014Q2

REPORT INFORMATION
  Report Type: Spontaneous
  Country: JP (occurrence: JP)
  Receive Date: 20140523
  Receipt Date: 20140523
  Transmission Date: 20141212
  Serious: Yes (Other)
  Sender: FDA-Public Use
  Company Number: JP-JNJFOC-20140413411

PATIENT
  Age: 45 Year
  Sex: Female

DRUGS (3)
  1. SOVRIAD [Suspect]
     Indication: CHRONIC HEPATITIS C
     Route: 048
  2. PEGASYS [Suspect]
     Indication: CHRONIC HEPATITIS C
     Route: 058
  3. COPEGUS [Concomitant]
     Indication: CHRONIC HEPATITIS C
     Route: 048

REACTIONS (1)
  - Alanine aminotransferase increased [Recovering/Resolving]
